FAERS Safety Report 10908209 (Version 2)
Quarter: 2015Q2

REPORT INFORMATION
  Report Type: Spontaneous
  Country: FR (occurrence: FR)
  Receive Date: 20150312
  Receipt Date: 20150520
  Transmission Date: 20150821
  Serious: Yes (Hospitalization, Other)
  Sender: FDA-Public Use
  Company Number: FR-PFIZER INC-2015079958

PATIENT
  Age: 48 Year
  Sex: Male
  Weight: 69 kg

DRUGS (11)
  1. ISOPTIN - SLOW RELEASE [Concomitant]
     Dosage: 240 MG, 1X/DAY
     Route: 048
  2. KARDEGIC [Concomitant]
     Active Substance: ASPIRIN LYSINE
     Dosage: 160 MG, 1X/DAY
     Route: 048
  3. BACLOFEN. [Suspect]
     Active Substance: BACLOFEN
     Dosage: 7 DF (2-3-2), DAILY
     Route: 048
     Dates: start: 20140916
  4. BACLOFEN. [Suspect]
     Active Substance: BACLOFEN
     Dosage: 100 MG (10 DF, 3-4-3), DAILY
     Route: 048
     Dates: start: 20141210, end: 20141222
  5. BACLOFEN. [Suspect]
     Active Substance: BACLOFEN
     Indication: ALCOHOL WITHDRAWAL SYNDROME
     Dosage: 2 DF, 3X/DAY
     Route: 048
     Dates: start: 20140828
  6. BACLOFEN. [Suspect]
     Active Substance: BACLOFEN
     Dosage: 8 DF (3-2-3), DAILY
     Route: 048
     Dates: start: 20141129
  7. PAROXETINE [Concomitant]
     Active Substance: PAROXETINE\PAROXETINE HYDROCHLORIDE
     Dosage: 30 MG, 1X/DAY
     Route: 048
  8. TAHOR [Suspect]
     Active Substance: ATORVASTATIN CALCIUM
     Indication: HYPERCHOLESTEROLAEMIA
     Dosage: 10 MG, 1X/DAY
     Route: 048
     Dates: end: 20141222
  9. BACLOFEN. [Suspect]
     Active Substance: BACLOFEN
     Dosage: 3 DF, 3X/DAY
     Route: 048
     Dates: start: 20141202
  10. THERALENE [Concomitant]
     Active Substance: TRIMEPRAZINE
     Dosage: 10 MG, 1X/DAY
     Route: 048
     Dates: start: 20140826
  11. DIAZEPAM. [Concomitant]
     Active Substance: DIAZEPAM
     Dosage: 1 MG, 1X/DAY
     Route: 048
     Dates: start: 20140826

REACTIONS (10)
  - Huntington^s disease [Unknown]
  - Hypokalaemia [Recovered/Resolved]
  - Hypercapnia [Unknown]
  - Muscle spasms [Recovered/Resolved]
  - Hepatocellular injury [Recovered/Resolved]
  - Electrocardiogram abnormal [Unknown]
  - Rhabdomyolysis [Recovered/Resolved]
  - Metabolic alkalosis [Recovered/Resolved]
  - Electrocardiogram QT prolonged [Unknown]
  - Blood pressure fluctuation [Unknown]

NARRATIVE: CASE EVENT DATE: 201412
